FAERS Safety Report 6144000-2 (Version None)
Quarter: 2009Q2

REPORT INFORMATION
  Report Type: 
  Country: None (occurrence: None)
  Receive Date: 20090401
  Receipt Date: 20090325
  Transmission Date: 20091009
  Serious: Yes (Hospitalization, Other)
  Sender: FDA-Public Use
  Company Number: 2008SP003934

PATIENT
  Age: 77 Year
  Sex: Male
  Weight: 93 kg

DRUGS (10)
  1. DESLORATADINE [Suspect]
     Indication: ANTIALLERGIC THERAPY
     Dosage: 5 MG; ONCE; PO
     Route: 048
     Dates: start: 20070315, end: 20070315
  2. IBUPROFEN [Suspect]
     Indication: HEADACHE
     Dosage: 400 MG;
     Dates: start: 20070315
  3. NORVASC [Concomitant]
  4. CRESTOR [Concomitant]
  5. ASAPHEN EC [Concomitant]
  6. SURMONTIL [Concomitant]
  7. LANOXIN [Concomitant]
  8. NAPROXEN [Concomitant]
  9. MICARDIS [Concomitant]
  10. NEURONTIN [Concomitant]

REACTIONS (3)
  - ARRHYTHMIA [None]
  - BLOOD PRESSURE INCREASED [None]
  - HEART RATE INCREASED [None]
